FAERS Safety Report 21380846 (Version 1)
Quarter: 2022Q3

REPORT INFORMATION
  Report Type: Spontaneous
  Country: US (occurrence: US)
  Receive Date: 20220927
  Receipt Date: 20220927
  Transmission Date: 20221026
  Serious: Yes (Other)
  Sender: FDA-Public Use
  Company Number: US-NOVOPROD-961563

PATIENT
  Age: 56 Year
  Sex: Male

DRUGS (1)
  1. OZEMPIC [Suspect]
     Active Substance: SEMAGLUTIDE
     Indication: Type 2 diabetes mellitus
     Dosage: 0.25 MG
     Route: 058
     Dates: start: 2017

REACTIONS (3)
  - Nephrolithiasis [Recovering/Resolving]
  - Prostatomegaly [Recovering/Resolving]
  - Neck mass [Recovering/Resolving]

NARRATIVE: CASE EVENT DATE: 20220501
